FAERS Safety Report 8773628 (Version 1)
Quarter: 2012Q4

REPORT INFORMATION
  Report Type: 
  Country: US (occurrence: US)
  Receive Date: 20120907
  Receipt Date: 20120907
  Transmission Date: 20130627
  Serious: Yes (Other)
  Sender: FDA-Public Use
  Company Number: PHEH2012US017320

PATIENT
  Sex: Female

DRUGS (2)
  1. DIOVAN [Suspect]
     Dosage: 80 mg, BID
  2. PROPRANOLOL [Concomitant]
     Dosage: UNK UKN, TID

REACTIONS (1)
  - Cerebrovascular accident [Unknown]
